FAERS Safety Report 10493870 (Version 1)
Quarter: 2014Q4

REPORT INFORMATION
  Report Type: Spontaneous
  Country: BR (occurrence: BR)
  Receive Date: 20141003
  Receipt Date: 20141003
  Transmission Date: 20150528
  Serious: Yes (Other)
  Sender: FDA-Public Use
  Company Number: BR-AMGEN-BRASP2014075794

PATIENT
  Age: 49 Year
  Sex: Female
  Weight: 67 kg

DRUGS (3)
  1. ENBREL [Suspect]
     Active Substance: ETANERCEPT
     Indication: RHEUMATOID ARTHRITIS
     Dosage: 25 MG, 2X/WEEK
     Route: 058
     Dates: start: 20140902
  2. TRIAMCINOLONE [Concomitant]
     Active Substance: TRIAMCINOLONE
     Indication: RHEUMATOID ARTHRITIS
     Dosage: UNK
     Dates: start: 2009
  3. METHOTREXATE [Concomitant]
     Active Substance: METHOTREXATE
     Indication: RHEUMATOID ARTHRITIS
     Dosage: UNK
     Dates: start: 2011

REACTIONS (12)
  - Injection site discolouration [Not Recovered/Not Resolved]
  - Hypersensitivity [Unknown]
  - Injection site mass [Unknown]
  - Nail bed inflammation [Unknown]
  - Injection site warmth [Unknown]
  - Axillary mass [Unknown]
  - Helminthic infection [Not Recovered/Not Resolved]
  - Ingrown hair [Unknown]
  - Nail injury [Unknown]
  - Injection site erythema [Not Recovered/Not Resolved]
  - Axillary pain [Unknown]
  - Decreased immune responsiveness [Not Recovered/Not Resolved]

NARRATIVE: CASE EVENT DATE: 201409
